FAERS Safety Report 8351317-X (Version None)
Quarter: 2012Q2

REPORT INFORMATION
  Report Type: 
  Country: None (occurrence: None)
  Receive Date: 20120510
  Receipt Date: 20120430
  Transmission Date: 20120825
  Serious: Yes (Hospitalization)
  Sender: FDA-Public Use
  Company Number: IT-BAXTER-2012BAX004233

PATIENT
  Sex: Female

DRUGS (3)
  1. IFOSFAMIDE [Suspect]
     Indication: HODGKIN'S DISEASE
     Route: 042
     Dates: start: 20100426, end: 20100429
  2. NAVELBINE [Suspect]
     Route: 042
     Dates: start: 20100426, end: 20100426
  3. GEMCITABINE [Suspect]
     Route: 042
     Dates: start: 20100426, end: 20100429

REACTIONS (2)
  - ERYTHEMA [None]
  - HYPERSOMNIA [None]
